FAERS Safety Report 22633507 (Version 1)
Quarter: 2023Q2

REPORT INFORMATION
  Report Type: Report from Study
  Country: EG (occurrence: EG)
  Receive Date: 20230623
  Receipt Date: 20230623
  Transmission Date: 20230721
  Serious: Yes (Other)
  Sender: FDA-Public Use
  Company Number: EG-Merck Healthcare KGaA-2023456072

PATIENT
  Age: 42 Year
  Sex: Male

DRUGS (1)
  1. REBIF [Suspect]
     Active Substance: INTERFERON BETA-1A
     Indication: Multiple sclerosis
     Route: 058

REACTIONS (1)
  - Bipolar disorder [Not Recovered/Not Resolved]
